FAERS Safety Report 9599508 (Version 1)
Quarter: 2013Q4

REPORT INFORMATION
  Report Type: Spontaneous
  Country: US (occurrence: US)
  Receive Date: 20131004
  Receipt Date: 20131004
  Transmission Date: 20140711
  Serious: No
  Sender: FDA-Public Use
  Company Number: US-AMGEN-USASP2013029388

PATIENT
  Age: 48 Year
  Sex: Male
  Weight: 96.59 kg

DRUGS (7)
  1. ENBREL [Suspect]
     Indication: PRODUCT USED FOR UNKNOWN INDICATION
     Dosage: 50 MG, QWK
     Route: 058
  2. METHOTREXATE [Concomitant]
     Dosage: 2.5 MG, UNK
  3. PLAQUENIL                          /00072602/ [Concomitant]
     Dosage: 200 MG, UNK
  4. FOLIC ACID [Concomitant]
     Dosage: UNK
  5. LISINOPRIL [Concomitant]
     Dosage: 10 MG, UNK
  6. SERTRALINE [Concomitant]
     Dosage: 50 MG, UNK
  7. AMLODIPINE [Concomitant]
     Dosage: 5 MG, UNK

REACTIONS (2)
  - Influenza [Unknown]
  - Sinusitis [Unknown]
